FAERS Safety Report 22633950 (Version 1)
Quarter: 2023Q2

REPORT INFORMATION
  Report Type: Report from Study
  Country: GR (occurrence: GR)
  Receive Date: 20230623
  Receipt Date: 20230623
  Transmission Date: 20230722
  Serious: Yes (Hospitalization, Other)
  Sender: FDA-Public Use
  Company Number: GR-BAXTER-2023BAX024481

PATIENT
  Age: 70 Year
  Sex: Female

DRUGS (12)
  1. DOXORUBICIN [Suspect]
     Active Substance: DOXORUBICIN
     Indication: High-grade B-cell lymphoma
     Dosage: DOSAGE FORM: INJECTION, SOLUTION, 85 MG, EVERY 3 WEEKS (DAILY AND TOTAL DOSE: 4.047 MG)
     Route: 041
     Dates: start: 20230208, end: 20230208
  2. CYCLOPHOSPHAMIDE [Suspect]
     Active Substance: CYCLOPHOSPHAMIDE
     Indication: High-grade B-cell lymphoma
     Dosage: DOSAGE FORM: INJECTION, SOLUTION, 1275 MG, EVERY 3 WEEKS (DAILY AND TOTAL DOSE: 60.71 MG)
     Route: 041
     Dates: start: 20230208, end: 20230208
  3. LEVOTHYROXINE [Concomitant]
     Active Substance: LEVOTHYROXINE
     Indication: Hypothyroidism
     Dosage: 0.112 MG, EVERY 24 HOURS
     Route: 048
  4. AMIKACIN [Concomitant]
     Active Substance: AMIKACIN
     Indication: Adverse event
     Dosage: 1000 MG, EVERY 1 DAY (DAILY DOSE: 1000 MG AND TOTAL DOSE: 7000)
     Route: 042
     Dates: start: 20230510, end: 20230516
  5. AMIKACIN [Concomitant]
     Active Substance: AMIKACIN
     Dosage: 1000 MG, EVERY 1 DAY
     Route: 042
     Dates: start: 20230603
  6. ENTECAVIR [Concomitant]
     Active Substance: ENTECAVIR
     Indication: Hepatitis B
     Dosage: 0.5 MG, EVERY 24 HOURS (DAILY DOSE: 0.5 MG)
     Route: 048
     Dates: start: 20230131
  7. FILGRASTIM [Concomitant]
     Active Substance: FILGRASTIM
     Indication: Adverse event
     Dosage: 30,000,0 IU, EVERY 1 DAY (DAILY AND TOTAL DOSE: NAN)
     Route: 058
     Dates: start: 20230510, end: 20230517
  8. FILGRASTIM [Concomitant]
     Active Substance: FILGRASTIM
     Dosage: 30,000,0 KIU, EVERY 1 DAY (DAILY AND TOTAL DOSE: NAN)
     Route: 058
     Dates: start: 20230601, end: 20230607
  9. PIPERACILLIN AND TAZOBACTAM [Concomitant]
     Active Substance: PIPERACILLIN SODIUM\TAZOBACTAM SODIUM
     Indication: Adverse event
     Dosage: 4000/500 MG, EVERY 6 HOUR (DAILY AND TOTAL DOSE: NAN)
     Route: 042
     Dates: start: 20230510, end: 20230523
  10. PIPERACILLIN AND TAZOBACTAM [Concomitant]
     Active Substance: PIPERACILLIN SODIUM\TAZOBACTAM SODIUM
     Dosage: 4000/500 MG, EVERY 6 HOUR (DAILY AND TOTAL DOSE: NAN)
     Route: 042
     Dates: start: 20230603, end: 20230607
  11. VANCOMYCIN [Concomitant]
     Active Substance: VANCOMYCIN
     Indication: Adverse event
     Dosage: 1000 MG, TWICE EVERY 1 DAY (DAILY DOSE: 2000 MG AND TOTAL DOSE: 28000)
     Route: 042
     Dates: start: 20230510, end: 20230523
  12. ALLOPURINOL [Concomitant]
     Active Substance: ALLOPURINOL
     Indication: Prophylaxis
     Dosage: 300 MG, QD
     Route: 048
     Dates: start: 20230131

REACTIONS (2)
  - Febrile neutropenia [Recovering/Resolving]
  - Pyrexia [Recovering/Resolving]

NARRATIVE: CASE EVENT DATE: 20230603
